FAERS Safety Report 15979908 (Version 1)
Quarter: 2019Q1

REPORT INFORMATION
  Report Type: Spontaneous
  Country: ES (occurrence: ES)
  Receive Date: 20190219
  Receipt Date: 20190219
  Transmission Date: 20190418
  Serious: Yes (Hospitalization)
  Sender: FDA-Public Use
  Company Number: ES-ZYDUS-033819

PATIENT
  Age: 31 Year
  Sex: Female

DRUGS (4)
  1. SERTRALINE [Suspect]
     Active Substance: SERTRALINE HYDROCHLORIDE
     Indication: MIXED ANXIETY AND DEPRESSIVE DISORDER
     Route: 065
  2. TIZANIDINE. [Interacting]
     Active Substance: TIZANIDINE
     Indication: MUSCLE CONTRACTURE
     Dosage: 2 MG EVERY 3 HOURS (16 MG DAILY)
     Route: 065
  3. DIAZEPAM. [Concomitant]
     Active Substance: DIAZEPAM
     Indication: MIXED ANXIETY AND DEPRESSIVE DISORDER
     Route: 065
  4. TIZANIDINE. [Interacting]
     Active Substance: TIZANIDINE
     Indication: MUSCLE CONTRACTURE
     Dosage: 2 MG EVERY 8 HOURS (6 MG DAILY)
     Route: 065
     Dates: start: 201605

REACTIONS (2)
  - Sinus tachycardia [Recovered/Resolved]
  - Drug interaction [Unknown]
